FAERS Safety Report 24688742 (Version 1)
Quarter: 2024Q4

REPORT INFORMATION
  Report Type: Spontaneous
  Country: FR (occurrence: FR)
  Receive Date: 20241203
  Receipt Date: 20241203
  Transmission Date: 20250115
  Serious: Yes (Other)
  Sender: CELLTRION
  Company Number: None

PATIENT

DRUGS (3)
  1. INFLIXIMAB [Suspect]
     Active Substance: INFLIXIMAB
     Indication: Crohn^s disease
     Dosage: 15 MG/KG, EVERY 6 WEEKS
     Route: 042
     Dates: start: 20230405, end: 20230626
  2. INFLIXIMAB [Suspect]
     Active Substance: INFLIXIMAB
     Dosage: 13 MG/KG, EVERY 6 WEEKS
     Route: 042
     Dates: start: 20230626, end: 20230927
  3. INFLIXIMAB [Suspect]
     Active Substance: INFLIXIMAB
     Dosage: 16 MG/KG, 1 TOTAL
     Route: 042
     Dates: start: 20230927, end: 20230927

REACTIONS (5)
  - Psoriasis [Not Recovered/Not Resolved]
  - Eczema [Not Recovered/Not Resolved]
  - Paradoxical drug reaction [Not Recovered/Not Resolved]
  - Intentional product use issue [Unknown]
  - Overdose [Unknown]

NARRATIVE: CASE EVENT DATE: 20230717
